FAERS Safety Report 12550281 (Version 2)
Quarter: 2016Q3

REPORT INFORMATION
  Report Type: Report from Study
  Country: BR (occurrence: BR)
  Receive Date: 20160712
  Receipt Date: 20160714
  Transmission Date: 20161109
  Serious: Yes (Death, Hospitalization, Other)
  Sender: FDA-Public Use
  Company Number: PHHY2016BR093934

PATIENT
  Age: 84 Year
  Sex: Female
  Weight: 88 kg

DRUGS (1)
  1. DIOVAN [Suspect]
     Active Substance: VALSARTAN
     Indication: HYPERTENSION
     Dosage: 1 DF, QD
     Route: 048
     Dates: end: 201511

REACTIONS (4)
  - Infarction [Recovered/Resolved]
  - Pneumonia [Fatal]
  - Chronic kidney disease [Fatal]
  - Septic shock [Fatal]

NARRATIVE: CASE EVENT DATE: 201512
